FAERS Safety Report 4591332-5 (Version None)
Quarter: 2005Q1

REPORT INFORMATION
  Report Type: 
  Country: None (occurrence: None)
  Receive Date: 20050225
  Receipt Date: 20050127
  Transmission Date: 20050727
  Serious: Yes (Hospitalization)
  Sender: FDA-Public Use
  Company Number: FR-BRISTOL-MYERS SQUIBB COMPANY-12841177

PATIENT
  Age: 40 Year
  Sex: Female
  Weight: 61 kg

DRUGS (10)
  1. LOPRIL [Suspect]
     Indication: HYPERTENSION
     Route: 048
     Dates: start: 20041219, end: 20050121
  2. PRAVASTATIN [Suspect]
     Route: 048
     Dates: start: 20050104, end: 20050121
  3. LASILIX [Suspect]
     Indication: RENAL FAILURE CHRONIC
     Route: 048
     Dates: start: 20050104, end: 20050121
  4. PREVISCAN [Suspect]
     Route: 048
     Dates: start: 20041230, end: 20050121
  5. STILNOX [Suspect]
     Route: 048
     Dates: start: 20041230, end: 20050121
  6. NEORECORMON [Suspect]
     Route: 058
     Dates: start: 20050117, end: 20050117
  7. TARDYFERON [Suspect]
  8. PULMICORT [Suspect]
  9. DOLIPRANE [Suspect]
  10. TENORMIN [Concomitant]
     Dates: start: 20041212

REACTIONS (2)
  - AGRANULOCYTOSIS [None]
  - LARYNGEAL DYSPNOEA [None]
